FAERS Safety Report 6824741-1 (Version None)
Quarter: 2010Q3

REPORT INFORMATION
  Report Type: 
  Country: None (occurrence: None)
  Receive Date: 20100708
  Receipt Date: 20070407
  Transmission Date: 20110219
  Serious: No
  Sender: FDA-Public Use
  Company Number: US-PFIZER INC-2006145783

PATIENT
  Sex: Male

DRUGS (3)
  1. VARENICLINE [Suspect]
  2. TOPAMAX [Concomitant]
  3. SUMATRIPTAN SUCCINATE (IMITREX) [Concomitant]

REACTIONS (1)
  - MIGRAINE [None]
